FAERS Safety Report 6663929-X (Version None)
Quarter: 2010Q2

REPORT INFORMATION
  Report Type: 
  Country: None (occurrence: None)
  Receive Date: 20100401
  Receipt Date: 20100330
  Transmission Date: 20101027
  Serious: Yes (Other)
  Sender: FDA-Public Use
  Company Number: MX-ELI_LILLY_AND_COMPANY-MX201003001029

PATIENT
  Age: 53 Year
  Sex: Female
  Weight: 90 kg

DRUGS (3)
  1. BYETTA [Suspect]
     Dosage: 5 UG, 2/D
     Route: 058
     Dates: start: 20100105, end: 20100205
  2. LIVIAL [Concomitant]
     Indication: HORMONE THERAPY
     Dosage: UNK, UNKNOWN
     Route: 065
  3. PREDNEFRIN [Concomitant]
     Indication: EYE DISORDER

REACTIONS (4)
  - EYE INFECTION [None]
  - GINGIVAL PAIN [None]
  - HERPES OPHTHALMIC [None]
  - HYPOPHAGIA [None]
